FAERS Safety Report 6029775-5 (Version None)
Quarter: 2009Q1

REPORT INFORMATION
  Report Type: 
  Country: None (occurrence: None)
  Receive Date: 20090106
  Receipt Date: 20090106
  Transmission Date: 20090719
  Serious: No
  Sender: FDA-Public Use
  Company Number: None

PATIENT
  Age: 51 Year
  Sex: Female

DRUGS (2)
  1. EFFEXOR XR [Suspect]
     Indication: DEPRESSION
     Dosage: 37.5 MG X1 WEEK P.O. ORAL THEN 75 MG X 1 WEEK P.O. ORAL
     Route: 048
     Dates: start: 20081122, end: 20081128
  2. EFFEXOR XR [Suspect]
     Indication: DEPRESSION
     Dosage: 37.5 MG X1 WEEK P.O. ORAL THEN 75 MG X 1 WEEK P.O. ORAL
     Route: 048
     Dates: start: 20081129, end: 20081206

REACTIONS (5)
  - CONSTIPATION [None]
  - DRY SKIN [None]
  - INSOMNIA [None]
  - RASH [None]
  - SKIN EXFOLIATION [None]
